FAERS Safety Report 18041832 (Version 1)
Quarter: 2020Q3

REPORT INFORMATION
  Report Type: Spontaneous
  Country: IT (occurrence: IT)
  Receive Date: 20200720
  Receipt Date: 20200720
  Transmission Date: 20201103
  Serious: Yes (Hospitalization)
  Sender: FDA-Public Use
  Company Number: IT-SUN PHARMACEUTICAL INDUSTRIES LTD-2020RR-253900

PATIENT
  Age: 30 Year
  Sex: Female

DRUGS (5)
  1. XANAX [Suspect]
     Active Substance: ALPRAZOLAM
     Indication: INTENTIONAL SELF-INJURY
     Dosage: 10 DOSAGE FORM, IN TOTAL
     Route: 048
     Dates: start: 20200618, end: 20200618
  2. LAMOTRIGINE. [Concomitant]
     Active Substance: LAMOTRIGINE
     Indication: PRODUCT USED FOR UNKNOWN INDICATION
     Dosage: 100 MILLIGRAM, UNK
     Route: 048
  3. MUTABON ANTIDEPRESSIVO 2 MG + 25 MG COMPRESSE RIVESTITE CON FILM [Suspect]
     Active Substance: AMITRIPTYLINE HYDROCHLORIDE\PERPHENAZINE
     Indication: INTENTIONAL SELF-INJURY
     Dosage: 10 DOSAGE FORM, IN TOTAL
     Route: 048
     Dates: start: 20200618, end: 20200618
  4. ZOLOFT [Concomitant]
     Active Substance: SERTRALINE HYDROCHLORIDE
     Indication: PRODUCT USED FOR UNKNOWN INDICATION
     Dosage: 1 DOSAGE FORM, UNK
     Route: 048
  5. PAROXETINE. [Suspect]
     Active Substance: PAROXETINE
     Indication: INTENTIONAL SELF-INJURY
     Dosage: 40 MILLIGRAM, IN TOTAL
     Route: 048
     Dates: start: 20200618, end: 20200618

REACTIONS (1)
  - Sopor [Recovering/Resolving]

NARRATIVE: CASE EVENT DATE: 20200618
